FAERS Safety Report 13688437 (Version 2)
Quarter: 2017Q3

REPORT INFORMATION
  Report Type: Report from Study
  Country: US (occurrence: US)
  Receive Date: 20170626
  Receipt Date: 20170703
  Transmission Date: 20171127
  Serious: Yes (Other)
  Sender: FDA-Public Use
  Company Number: US-AMGEN-USASL2017095714

PATIENT
  Age: 86 Year
  Sex: Male

DRUGS (2)
  1. ENBREL [Suspect]
     Active Substance: ETANERCEPT
     Dosage: EVERY SIX DAYS
     Route: 065
  2. ENBREL [Suspect]
     Active Substance: ETANERCEPT
     Indication: RHEUMATOID ARTHRITIS
     Dosage: EVERY FIVE DAYS
     Route: 065

REACTIONS (5)
  - Musculoskeletal stiffness [Unknown]
  - Grip strength decreased [Unknown]
  - Intentional product misuse [Unknown]
  - Joint destruction [Unknown]
  - Hand deformity [Unknown]
